FAERS Safety Report 24031764 (Version 2)
Quarter: 2024Q3

REPORT INFORMATION
  Report Type: Spontaneous
  Country: JP (occurrence: JP)
  Receive Date: 20240629
  Receipt Date: 20240708
  Transmission Date: 20241016
  Serious: Yes (Other)
  Sender: ACCORD
  Company Number: JP-Accord-432318

PATIENT
  Age: 74 Year
  Sex: Male
  Weight: 61 kg

DRUGS (9)
  1. FLUOROURACIL [Suspect]
     Active Substance: FLUOROURACIL
     Indication: Metastases to liver
     Dosage: ON DAY 1, 1 COURSE
  2. OXALIPLATIN [Suspect]
     Active Substance: OXALIPLATIN
     Indication: Rectal cancer stage IV
     Dosage: ON DAY 1, 1 COURSE
  3. LEVOLEUCOVORIN CALCIUM [Suspect]
     Active Substance: LEVOLEUCOVORIN CALCIUM
     Indication: Metastases to liver
     Dosage: ON DAY 1, 1 COURSE
  4. FLUOROURACIL [Suspect]
     Active Substance: FLUOROURACIL
     Indication: Metastases to lymph nodes
     Dosage: INFUSION: DAYS 1 TO 3
  5. FLUOROURACIL [Suspect]
     Active Substance: FLUOROURACIL
     Indication: Rectal cancer stage IV
     Dosage: ON DAY 1, 1 COURSE
  6. LEVOLEUCOVORIN CALCIUM [Suspect]
     Active Substance: LEVOLEUCOVORIN CALCIUM
     Indication: Metastases to lymph nodes
     Dosage: ON DAY 1, 1 COURSE
  7. OXALIPLATIN [Suspect]
     Active Substance: OXALIPLATIN
     Indication: Metastases to lymph nodes
     Dosage: ON DAY 1, 1 COURSE
  8. OXALIPLATIN [Suspect]
     Active Substance: OXALIPLATIN
     Indication: Metastases to liver
     Dosage: ON DAY 1, 1 COURSE
  9. LEVOLEUCOVORIN CALCIUM [Suspect]
     Active Substance: LEVOLEUCOVORIN CALCIUM
     Indication: Rectal cancer stage IV
     Dosage: ON DAY 1, 1 COURSE

REACTIONS (7)
  - Dehydration [Unknown]
  - Epilepsy [Recovered/Resolved]
  - Hyperkalaemia [Recovered/Resolved]
  - Asterixis [Recovered/Resolved]
  - Metabolic encephalopathy [Recovered/Resolved]
  - Hyperammonaemia [Recovered/Resolved]
  - Lactic acidosis [Recovered/Resolved]
